FAERS Safety Report 20607204 (Version 1)
Quarter: 2022Q1

REPORT INFORMATION
  Report Type: Spontaneous
  Country: GB (occurrence: None)
  Receive Date: 20220317
  Receipt Date: 20220317
  Transmission Date: 20220423
  Serious: Yes (Other)
  Sender: FDA-Public Use
  Company Number: None

PATIENT
  Age: 60 Year
  Sex: Male
  Weight: 102 kg

DRUGS (2)
  1. ATORVASTATIN [Suspect]
     Active Substance: ATORVASTATIN
     Indication: Myocardial infarction
     Dosage: 80 MG ONCE A DAY
     Dates: start: 20210808, end: 20220222
  2. DAPAGLIFLOZIN [Suspect]
     Active Substance: DAPAGLIFLOZIN
     Indication: Myocardial infarction
     Dosage: 10MG ONCE A DAY
     Dates: end: 20220222

REACTIONS (1)
  - Balanitis candida [Recovered/Resolved]

NARRATIVE: CASE EVENT DATE: 20220115
